FAERS Safety Report 11695742 (Version 1)
Quarter: 2015Q4

REPORT INFORMATION
  Report Type: Spontaneous
  Country: US (occurrence: None)
  Receive Date: 20151103
  Receipt Date: 20151103
  Transmission Date: 20160304
  Serious: Yes (Other)
  Sender: FDA-Public Use
  Company Number: None

PATIENT
  Age: 73 Year
  Sex: Male
  Weight: 106.6 kg

DRUGS (4)
  1. ENALAPRIL 20 MG [Suspect]
     Active Substance: ENALAPRIL
     Indication: HYPERTENSION
     Dosage: TAKEN BY MOUTH
     Dates: start: 20150820, end: 20151101
  2. CENTRUM [Concomitant]
     Active Substance: VITAMINS
  3. ASPIRIN. [Concomitant]
     Active Substance: ASPIRIN
  4. ENALAPRIL [Concomitant]
     Active Substance: ENALAPRIL

REACTIONS (5)
  - Blood pressure increased [None]
  - Product measured potency issue [None]
  - Product substitution issue [None]
  - Product colour issue [None]
  - Drug ineffective [None]

NARRATIVE: CASE EVENT DATE: 20151101
